FAERS Safety Report 24621064 (Version 1)
Quarter: 2024Q4

REPORT INFORMATION
  Report Type: Spontaneous
  Country: CN (occurrence: CN)
  Receive Date: 20241114
  Receipt Date: 20241114
  Transmission Date: 20250115
  Serious: Yes (Hospitalization)
  Sender: Alora Pharma
  Company Number: CN-VERTICAL PHARMACEUTICALS-2024ALO00521

PATIENT
  Age: 33 Year
  Sex: Female

DRUGS (2)
  1. ESTRADIOL [Suspect]
     Active Substance: ESTRADIOL
     Indication: Menstruation irregular
     Dosage: 2 MG, 2X/DAY [TABLET]
     Route: 048
     Dates: start: 20240404, end: 20240405
  2. ESTRADIOL [Suspect]
     Active Substance: ESTRADIOL
     Indication: Endometrial disorder

REACTIONS (2)
  - Drug reaction with eosinophilia and systemic symptoms [Recovered/Resolved]
  - Hepatic function abnormal [Unknown]

NARRATIVE: CASE EVENT DATE: 20240405
